FAERS Safety Report 14174842 (Version 1)
Quarter: 2017Q4

REPORT INFORMATION
  Report Type: Spontaneous
  Country: US (occurrence: US)
  Receive Date: 20171109
  Receipt Date: 20171109
  Transmission Date: 20180321
  Serious: Yes (Other)
  Sender: FDA-Public Use
  Company Number: US-AMGEN-USASP2017167422

PATIENT
  Sex: Male

DRUGS (3)
  1. XOFIGO [Concomitant]
     Active Substance: RADIUM RA-223 DICHLORIDE
  2. XGEVA [Suspect]
     Active Substance: DENOSUMAB
     Indication: PROSTATE CANCER
     Dosage: UNK
     Route: 065
  3. XTANDI [Concomitant]
     Active Substance: ENZALUTAMIDE

REACTIONS (2)
  - Glaucoma [Not Recovered/Not Resolved]
  - Cataract [Not Recovered/Not Resolved]
